FAERS Safety Report 8520178-8 (Version None)
Quarter: 2012Q3

REPORT INFORMATION
  Report Type: 
  Country: None (occurrence: None)
  Receive Date: 20120719
  Receipt Date: 20120710
  Transmission Date: 20120928
  Serious: Yes (Hospitalization, Other)
  Sender: FDA-Public Use
  Company Number: JP-JNJFOC-20120515285

PATIENT
  Age: 83 Year
  Sex: Female
  Weight: 50 kg

DRUGS (8)
  1. GALANTAMINE HYDROBROMIDE [Suspect]
     Indication: DEMENTIA
     Route: 048
     Dates: start: 20110715
  2. LIPITOR [Concomitant]
     Indication: DYSLIPIDAEMIA
     Route: 048
     Dates: start: 20090529
  3. GALANTAMINE HYDROBROMIDE [Suspect]
     Route: 048
     Dates: start: 20120526
  4. GALANTAMINE HYDROBROMIDE [Suspect]
     Route: 048
     Dates: start: 20110617, end: 20110714
  5. LIPITOR [Concomitant]
     Route: 048
     Dates: start: 20021117, end: 20090529
  6. GASMOTIN [Concomitant]
     Indication: CONSTIPATION
     Route: 048
     Dates: start: 20081117
  7. ALPRAZOLAM [Concomitant]
     Indication: RESTLESSNESS
     Route: 048
     Dates: start: 20081117
  8. LAXOBERON [Concomitant]
     Indication: CONSTIPATION
     Route: 048
     Dates: start: 20081117

REACTIONS (4)
  - NASOPHARYNGITIS [None]
  - GASTROENTERITIS [None]
  - PNEUMONIA [None]
  - LOSS OF CONSCIOUSNESS [None]
